FAERS Safety Report 8831295 (Version 2)
Quarter: 2013Q1

REPORT INFORMATION
  Report Type: Report from Study
  Country: JP (occurrence: JP)
  Receive Date: 20121008
  Receipt Date: 20130326
  Transmission Date: 20140127
  Serious: Yes (Other)
  Sender: FDA-Public Use
  Company Number: JP-VERTEX PHARMACEUTICAL INC.-2012-022272

PATIENT
  Age: 65 Year
  Sex: Female

DRUGS (22)
  1. VX-950 (TELAPREVIR) [Suspect]
     Indication: CHRONIC HEPATITIS C
     Dosage: 1500 MG, QD
     Route: 048
     Dates: start: 20120615, end: 20120726
  2. VX-950 (TELAPREVIR) [Suspect]
     Dosage: 1000 MG, QD
     Route: 048
     Dates: start: 20120726, end: 20120813
  3. REBETOL [Suspect]
     Indication: CHRONIC HEPATITIS C
     Dosage: 400 MG, QD
     Route: 048
     Dates: start: 20120615, end: 20120705
  4. REBETOL [Suspect]
     Dosage: 200 MG, QD
     Route: 048
     Dates: start: 20120706
  5. REBETOL [Suspect]
     Dosage: 400 MG, QD
     Route: 048
     Dates: end: 20120619
  6. REBETOL [Suspect]
     Dosage: 200 MG, QD
     Route: 048
     Dates: start: 20120619, end: 20120831
  7. REBETOL [Suspect]
     Dosage: 400 MG, QD
     Route: 048
     Dates: start: 20120831, end: 20120914
  8. REBETOL [Suspect]
     Dosage: 600 MG, QD
     Route: 048
     Dates: start: 20120914, end: 20121005
  9. REBETOL [Suspect]
     Dosage: 400 MG, QD
     Route: 048
     Dates: start: 20121005, end: 20121206
  10. PEGINTERFERON ALFA-2B [Suspect]
     Indication: CHRONIC HEPATITIS C
     Dosage: 80 ?G, QW
     Route: 058
     Dates: start: 20120615, end: 20120706
  11. PEGINTERFERON ALFA-2B [Suspect]
     Dosage: 40 ?G, QW
     Route: 058
     Dates: start: 20120713, end: 20121206
  12. RILMAZAFONE HYDROCHLORIDE [Concomitant]
     Dosage: 1 MG, QD/PRN
     Route: 048
     Dates: start: 20120618, end: 20120810
  13. RILMAZAFONE HYDROCHLORIDE [Concomitant]
     Dosage: 10 MG, QD
     Route: 048
     Dates: end: 20120713
  14. TSUMURA RIKKUNSHITO EXTRACT GRANULES FOR ETHICAL USE [Concomitant]
     Dosage: 7.5 G, QD
     Route: 048
     Dates: end: 20121130
  15. FERROMIA [Concomitant]
     Dosage: 100 MG, QD
     Route: 048
     Dates: start: 20120720
  16. FERROMIA [Concomitant]
     Dosage: 5 G, QD
     Route: 048
  17. FERROMIA [Concomitant]
     Dosage: 100 MG, QD
     Route: 048
     Dates: end: 20121016
  18. BESOFTEN [Concomitant]
     Dosage: 25 G, QD/PRN
     Route: 061
     Dates: start: 20120726, end: 20120810
  19. TALION [Concomitant]
     Dosage: 20 MG, QD
     Route: 048
     Dates: start: 20120726
  20. MYSER [Concomitant]
     Dosage: 25 G, QD
     Route: 061
     Dates: start: 20120726, end: 20120810
  21. ZYLORIC [Concomitant]
     Dosage: 200 MG, QD
     Route: 048
     Dates: start: 20120726, end: 20120810
  22. CELESTAMINE [Concomitant]
     Dosage: 3 DF, QD
     Route: 048
     Dates: start: 20120726

REACTIONS (1)
  - Erythema multiforme [Recovered/Resolved]
